FAERS Safety Report 21633609 (Version 4)
Quarter: 2023Q2

REPORT INFORMATION
  Report Type: Report from Study
  Country: CA (occurrence: CA)
  Receive Date: 20221123
  Receipt Date: 20230622
  Transmission Date: 20230722
  Serious: Yes (Hospitalization, Other)
  Sender: FDA-Public Use
  Company Number: CA-OTSUKA-2021_037867

PATIENT
  Sex: Male

DRUGS (2)
  1. CEDAZURIDINE\DECITABINE [Suspect]
     Active Substance: CEDAZURIDINE\DECITABINE
     Indication: Myelodysplastic syndrome
     Dosage: 135 MG (1 TABLET DIE 5/28 DAYS), QD
     Route: 065
     Dates: start: 20210521
  2. CEDAZURIDINE\DECITABINE [Suspect]
     Active Substance: CEDAZURIDINE\DECITABINE
     Dosage: 5 PILLS /38 DAYS CYCLE
     Route: 065

REACTIONS (13)
  - Transfusion [Unknown]
  - Neutropenia [Unknown]
  - White blood cell count decreased [Unknown]
  - Depressed mood [Unknown]
  - Head discomfort [Unknown]
  - Anosmia [Unknown]
  - Ageusia [Unknown]
  - Constipation [Unknown]
  - Dizziness [Not Recovered/Not Resolved]
  - Headache [Unknown]
  - Fatigue [Unknown]
  - Therapy interrupted [Unknown]
  - Inappropriate schedule of product administration [Unknown]
